FAERS Safety Report 10082980 (Version 8)
Quarter: 2014Q2

REPORT INFORMATION
  Report Type: Report from Study
  Country: DE (occurrence: DE)
  Receive Date: 20140417
  Receipt Date: 20140630
  Transmission Date: 20141212
  Serious: Yes (Hospitalization)
  Sender: FDA-Public Use
  Company Number: DE-ROCHE-1376545

PATIENT
  Age: 70 Year
  Sex: Male
  Weight: 94 kg

DRUGS (16)
  1. BEVACIZUMAB [Suspect]
     Indication: LUNG NEOPLASM MALIGNANT
     Route: 042
     Dates: start: 20140318
  2. BEVACIZUMAB [Suspect]
     Route: 042
     Dates: start: 20140408, end: 20140408
  3. BEVACIZUMAB [Suspect]
     Route: 042
     Dates: start: 20140506, end: 20140506
  4. PEMETREXED [Suspect]
     Indication: LUNG NEOPLASM MALIGNANT
     Route: 042
     Dates: start: 20140318
  5. PEMETREXED [Suspect]
     Route: 042
     Dates: start: 20140408, end: 20140408
  6. PEMETREXED [Suspect]
     Route: 042
     Dates: start: 20140506, end: 20140506
  7. CARBOPLATIN [Suspect]
     Indication: LUNG NEOPLASM MALIGNANT
     Dosage: 5 AUC
     Route: 042
     Dates: start: 20140318
  8. CARBOPLATIN [Suspect]
     Dosage: 5 AUC
     Route: 042
     Dates: start: 20140408, end: 20140408
  9. CARBOPLATIN [Suspect]
     Route: 042
     Dates: start: 20140506, end: 20140506
  10. RAMIPRIL [Concomitant]
     Indication: HYPERTENSION
     Route: 048
     Dates: start: 20130101
  11. ALLOPURINOL [Concomitant]
     Indication: HYPERURICAEMIA
     Route: 048
     Dates: start: 20110101
  12. FOLSAN [Concomitant]
     Route: 048
     Dates: start: 20140110
  13. OXYGESIC [Concomitant]
     Indication: PAIN
     Dosage: AS NEEDED
     Route: 048
     Dates: start: 20140110
  14. NOVALGIN (GERMANY) [Concomitant]
     Indication: PAIN
     Dosage: AS NEEDED
     Route: 048
     Dates: start: 20140110
  15. PREDNISOLON [Concomitant]
     Route: 065
     Dates: start: 20140327
  16. ZOLPIDEM [Concomitant]
     Route: 065
     Dates: start: 20140327

REACTIONS (7)
  - Dysphagia [Recovered/Resolved]
  - Erosive duodenitis [Unknown]
  - Gastritis [Not Recovered/Not Resolved]
  - Fluid intake reduced [Recovered/Resolved]
  - Hypophagia [Recovered/Resolved]
  - Mucosal inflammation [Recovered/Resolved]
  - Erosive oesophagitis [Recovering/Resolving]
